FAERS Safety Report 14914205 (Version 3)
Quarter: 2018Q2

REPORT INFORMATION
  Report Type: Report from Study
  Country: US (occurrence: US)
  Receive Date: 20180518
  Receipt Date: 20180607
  Transmission Date: 20180711
  Serious: Yes (Death, Hospitalization)
  Sender: FDA-Public Use
  Company Number: US-JNJFOC-20180520551

PATIENT
  Sex: Male

DRUGS (14)
  1. DIGOXIN. [Concomitant]
     Active Substance: DIGOXIN
  2. LISINOPRIL. [Concomitant]
     Active Substance: LISINOPRIL
  3. HCTZ [Concomitant]
     Active Substance: HYDROCHLOROTHIAZIDE
  4. PRESERVISION [Concomitant]
     Active Substance: MINERALS\VITAMINS
  5. PREDNISONE. [Concomitant]
     Active Substance: PREDNISONE
  6. TOPROL XL [Concomitant]
     Active Substance: METOPROLOL SUCCINATE
  7. OXYCODONE [Concomitant]
     Active Substance: OXYCODONE
  8. GABAPENTIN. [Concomitant]
     Active Substance: GABAPENTIN
  9. ATORVASTATIN [Concomitant]
     Active Substance: ATORVASTATIN
  10. LISINOPRIL/HCTZ [Concomitant]
     Active Substance: HYDROCHLOROTHIAZIDE\LISINOPRIL
  11. IMBRUVICA [Suspect]
     Active Substance: IBRUTINIB
     Indication: NON-HODGKIN^S LYMPHOMA
     Dosage: 420 MG, QD
     Route: 048
     Dates: start: 20180417
  12. ELIQUIS [Concomitant]
     Active Substance: APIXABAN
  13. ALLOPURINOL. [Concomitant]
     Active Substance: ALLOPURINOL
  14. ATIVAN [Concomitant]
     Active Substance: LORAZEPAM

REACTIONS (3)
  - Respiratory tract infection viral [Fatal]
  - Disease progression [Fatal]
  - Fluid retention [Not Recovered/Not Resolved]
